FAERS Safety Report 7967464-8 (Version None)
Quarter: 2011Q4

REPORT INFORMATION
  Report Type: 
  Country: None (occurrence: None)
  Receive Date: 20111209
  Receipt Date: 20110714
  Transmission Date: 20120403
  Serious: Yes (Hospitalization)
  Sender: FDA-Public Use
  Company Number: US-GLAXOSMITHKLINE-A0834241A

PATIENT
  Age: 60 Year
  Sex: Female
  Weight: 73.6 kg

DRUGS (1)
  1. AVANDAMET [Suspect]
     Indication: DIABETES MELLITUS
     Route: 048
     Dates: start: 20030501, end: 20080701

REACTIONS (1)
  - CARDIAC FAILURE CONGESTIVE [None]
